FAERS Safety Report 23598133 (Version 1)
Quarter: 2024Q1

REPORT INFORMATION
  Report Type: Report from Study
  Country: US (occurrence: US)
  Receive Date: 20240305
  Receipt Date: 20240305
  Transmission Date: 20240410
  Serious: Yes (Other)
  Sender: FDA-Public Use
  Company Number: US-ABBVIE-5566704

PATIENT
  Sex: Female

DRUGS (1)
  1. HUMIRA [Suspect]
     Active Substance: ADALIMUMAB
     Indication: Rheumatoid arthritis
     Dosage: CITRATE FREE FORM STRENGTH: 40MG
     Route: 058
     Dates: start: 20220503

REACTIONS (3)
  - Brain neoplasm [Unknown]
  - Cerebral cyst [Unknown]
  - Sinusitis [Unknown]

NARRATIVE: CASE EVENT DATE: 20230101
